FAERS Safety Report 4635228-9 (Version None)
Quarter: 2005Q2

REPORT INFORMATION
  Report Type: 
  Country: None (occurrence: None)
  Receive Date: 20050411
  Receipt Date: 20050330
  Transmission Date: 20051028
  Serious: Yes (Hospitalization, Other)
  Sender: FDA-Public Use
  Company Number: 2004-11-1285

PATIENT
  Age: 41 Year
  Sex: Female

DRUGS (8)
  1. PEG-INTRON [Suspect]
     Indication: HEPATITIS C
     Dosage: 150 MCG QWK SUBCUTANEOUS
     Route: 058
     Dates: start: 20040701, end: 20041030
  2. RIBAVIRIN [Suspect]
     Indication: HEPATITIS C
     Dosage: 6 CAPS QD ORAL
     Route: 048
     Dates: start: 20040701, end: 20041102
  3. LIQUIBID [Concomitant]
  4. MAXZIDE [Concomitant]
  5. BEXTRA [Concomitant]
  6. TYLENOL (CAPLET) [Concomitant]
  7. TUMS [Concomitant]
  8. IBUPROFEN [Concomitant]

REACTIONS (8)
  - ANAEMIA [None]
  - GRAM STAIN POSITIVE [None]
  - HAEMOPTYSIS [None]
  - PNEUMONIA [None]
  - PULMONARY EMBOLISM [None]
  - PULMONARY OEDEMA [None]
  - THROMBOSIS [None]
  - WEGENER'S GRANULOMATOSIS [None]
